FAERS Safety Report 15233946 (Version 1)
Quarter: 2018Q3

REPORT INFORMATION
  Report Type: Spontaneous
  Country: US (occurrence: US)
  Receive Date: 20180709
  Receipt Date: 20180709
  Transmission Date: 20181010
  Serious: Yes (Hospitalization, Other)
  Sender: FDA-Public Use
  Company Number: None

PATIENT
  Sex: Female

DRUGS (10)
  1. ZANAFLEX [Concomitant]
     Active Substance: TIZANIDINE HYDROCHLORIDE
  2. TASIGNA [Suspect]
     Active Substance: NILOTINIB
     Indication: PRODUCT USED FOR UNKNOWN INDICATION
     Route: 048
     Dates: start: 20180130
  3. PANTOPRAZOLE 40MG [Concomitant]
     Active Substance: PANTOPRAZOLE SODIUM
  4. ALLOPURINOL 100MG [Concomitant]
     Active Substance: ALLOPURINOL
  5. CALCIFEROL 8000UNITS/ML [Concomitant]
  6. SYNTHROID 137MCG [Concomitant]
  7. CARAFATE SUSP 1GRAM/10ML [Concomitant]
  8. LYRICA [Concomitant]
     Active Substance: PREGABALIN
  9. DYAZIDE 37.5/25 [Concomitant]
  10. VYTORIN 10/80MG [Concomitant]

REACTIONS (3)
  - Cholecystectomy [None]
  - Nausea [None]
  - Flank pain [None]
